FAERS Safety Report 17356686 (Version 2)
Quarter: 2020Q1

REPORT INFORMATION
  Report Type: Spontaneous
  Country: US (occurrence: US)
  Receive Date: 20200131
  Receipt Date: 20200220
  Transmission Date: 20200409
  Serious: Yes (Hospitalization)
  Sender: FDA-Public Use
  Company Number: US-ACTELION-A-NJ2020-201103

PATIENT
  Age: 58 Year
  Sex: Female
  Weight: 54.42 kg

DRUGS (2)
  1. OPSUMIT [Suspect]
     Active Substance: MACITENTAN
     Indication: PULMONARY HYPERTENSION
     Dosage: 10 MG, QD
     Route: 048
  2. REMODULIN [Concomitant]
     Active Substance: TREPROSTINIL
     Dosage: 68 NG/KG, PER MIN
     Route: 058

REACTIONS (5)
  - Hypotension [Unknown]
  - Pyrexia [Unknown]
  - Pneumonia [Unknown]
  - Vomiting [Unknown]
  - Myalgia [Unknown]

NARRATIVE: CASE EVENT DATE: 20200118
